FAERS Safety Report 14765856 (Version 3)
Quarter: 2018Q3

REPORT INFORMATION
  Report Type: Spontaneous
  Country: US (occurrence: US)
  Receive Date: 20180416
  Receipt Date: 20180803
  Transmission Date: 20181010
  Serious: No
  Sender: FDA-Public Use
  Company Number: US-ACTELION-A-NJ2018-170062

PATIENT
  Age: 35 Year
  Sex: Female

DRUGS (4)
  1. OPSUMIT [Suspect]
     Active Substance: MACITENTAN
     Dosage: 10 MG, QD
     Route: 048
     Dates: start: 20171129
  2. LAMICTAL [Concomitant]
     Active Substance: LAMOTRIGINE
  3. UPTRAVI [Concomitant]
     Active Substance: SELEXIPAG
     Route: 048
  4. OPSUMIT [Suspect]
     Active Substance: MACITENTAN
     Indication: PULMONARY ARTERIAL HYPERTENSION
     Dosage: UNK
     Route: 048

REACTIONS (3)
  - Dyspnoea [Unknown]
  - Malaise [Unknown]
  - Menorrhagia [Unknown]
